FAERS Safety Report 7723178-0 (Version None)
Quarter: 2011Q3

REPORT INFORMATION
  Report Type: 
  Country: None (occurrence: None)
  Receive Date: 20110826
  Receipt Date: 20110810
  Transmission Date: 20111222
  Serious: Yes (Hospitalization)
  Sender: FDA-Public Use
  Company Number: FK201101668

PATIENT
  Age: 51 Year
  Sex: Female

DRUGS (3)
  1. MITOXANTRONE [Suspect]
     Indication: ACUTE MYELOMONOCYTIC LEUKAEMIA
     Dosage: 15 MG/DAY
  2. CYTARABINE [Suspect]
     Indication: ACUTE MYELOMONOCYTIC LEUKAEMIA
     Dosage: 2200 MG/DAY
  3. ETOPOSIDE [Suspect]
     Indication: ACUTE MYELOMONOCYTIC LEUKAEMIA
     Dosage: 220 MG/DAY

REACTIONS (7)
  - BLOOD CULTURE POSITIVE [None]
  - MUCOSAL INFLAMMATION [None]
  - STAPHYLOCOCCUS TEST POSITIVE [None]
  - FEBRILE NEUTROPENIA [None]
  - BACTERAEMIA [None]
  - STOMATITIS [None]
  - FUSOBACTERIUM TEST POSITIVE [None]
